FAERS Safety Report 7394179-X (Version None)
Quarter: 2011Q2

REPORT INFORMATION
  Report Type: 
  Country: None (occurrence: None)
  Receive Date: 20110405
  Receipt Date: 20110324
  Transmission Date: 20111010
  Serious: Yes (Hospitalization, Other)
  Sender: FDA-Public Use
  Company Number: US-ELI_LILLY_AND_COMPANY-US201103008606

PATIENT
  Sex: Female

DRUGS (5)
  1. LANTUS [Concomitant]
     Dosage: 35 U, OTHER
  2. LANTUS [Concomitant]
     Dosage: 40 U, EACH EVENING
  3. CHEMOTHERAPEUTICS [Concomitant]
  4. CORTICOSTEROIDS [Concomitant]
     Dosage: UNK
     Dates: start: 20100601
  5. HUMALOG [Suspect]
     Indication: DIABETES MELLITUS
     Dosage: UNK, PRN
     Dates: start: 20100101

REACTIONS (8)
  - INFECTION [None]
  - DEPRESSED LEVEL OF CONSCIOUSNESS [None]
  - GAIT DISTURBANCE [None]
  - SPINAL DISORDER [None]
  - BONE DISORDER [None]
  - LUNG NEOPLASM MALIGNANT [None]
  - ASTHENIA [None]
  - PNEUMONIA [None]
